FAERS Safety Report 5541830-2 (Version None)
Quarter: 2007Q4

REPORT INFORMATION
  Report Type: 
  Country: None (occurrence: None)
  Receive Date: 20071129
  Receipt Date: 20070612
  Transmission Date: 20080405
  Serious: Yes (Hospitalization)
  Sender: FDA-Public Use
  Company Number: US200705004915

PATIENT
  Age: 94 Year
  Sex: Female

DRUGS (1)
  1. ZYPREXA [Suspect]
     Indication: AGITATION
     Dosage: 2.5 MG, DAILY (1/D), ORAL
     Route: 048

REACTIONS (3)
  - DEHYDRATION [None]
  - DYSPHAGIA [None]
  - WEIGHT DECREASED [None]
